FAERS Safety Report 17693226 (Version 4)
Quarter: 2020Q3

REPORT INFORMATION
  Report Type: Spontaneous
  Country: JP (occurrence: JP)
  Receive Date: 20200422
  Receipt Date: 20200812
  Transmission Date: 20201102
  Serious: Yes (Life-Threatening)
  Sender: FDA-Public Use
  Company Number: JP-ASTRAZENECA-2020SE52959

PATIENT
  Age: 22828 Day
  Sex: Female
  Weight: 44 kg

DRUGS (1)
  1. LYNPARZA [Suspect]
     Active Substance: OLAPARIB
     Indication: OVARIAN CANCER
     Route: 048
     Dates: start: 20181109, end: 20200219

REACTIONS (6)
  - Myelodysplastic syndrome [Not Recovered/Not Resolved]
  - Haemangioma [Unknown]
  - Hepatic cyst [Unknown]
  - Renal impairment [Unknown]
  - Pulmonary mass [Unknown]
  - Inflammation [Unknown]

NARRATIVE: CASE EVENT DATE: 20200408
